FAERS Safety Report 25478553 (Version 1)
Quarter: 2025Q2

REPORT INFORMATION
  Report Type: Spontaneous
  Country: AT (occurrence: AT)
  Receive Date: 20250625
  Receipt Date: 20250625
  Transmission Date: 20250717
  Serious: Yes (Other)
  Sender: ABBVIE
  Company Number: AT-ABBVIE-6341213

PATIENT
  Age: 55 Year
  Sex: Female

DRUGS (1)
  1. ELAHERE [Suspect]
     Active Substance: MIRVETUXIMAB SORAVTANSINE-GYNX
     Indication: Ovarian epithelial cancer
     Route: 042
     Dates: start: 202412

REACTIONS (6)
  - Lymphadenopathy [Unknown]
  - Hilar lymphadenopathy [Unknown]
  - Ovarian mass [Unknown]
  - Metastases to peritoneum [Recovering/Resolving]
  - Necrotic lymphadenopathy [Unknown]
  - Abdominal pain [Unknown]
